FAERS Safety Report 6605158-1 (Version None)
Quarter: 2010Q1

REPORT INFORMATION
  Report Type: 
  Country: None (occurrence: None)
  Receive Date: 20100226
  Receipt Date: 20100219
  Transmission Date: 20100710
  Serious: Yes (Hospitalization, Other)
  Sender: FDA-Public Use
  Company Number: TR-ELI_LILLY_AND_COMPANY-TR201002005677

PATIENT
  Sex: Male

DRUGS (6)
  1. HUMULIN R [Suspect]
     Indication: GESTATIONAL DIABETES
     Dosage: 10 IU, EACH MORNING
     Route: 064
     Dates: start: 20091201, end: 20100212
  2. HUMULIN R [Suspect]
     Dosage: 10 IU, OTHER
     Route: 064
     Dates: start: 20091201, end: 20100212
  3. HUMULIN R [Suspect]
     Dosage: 10 IU, EACH EVENING
     Route: 064
     Dates: start: 20091201, end: 20100212
  4. HUMULIN N [Suspect]
     Indication: GESTATIONAL DIABETES
     Dosage: 6 U, DAILY (1/D)
     Route: 064
     Dates: start: 20091201, end: 20100212
  5. MINOSET [Concomitant]
     Indication: MIGRAINE
     Dosage: 500 MG, AS NEEDED
     Route: 064
  6. IRON [Concomitant]
     Indication: MINERAL SUPPLEMENTATION
     Dosage: UNK, 2/D
     Route: 064
     Dates: start: 20091201

REACTIONS (2)
  - DRUG EXPOSURE DURING PREGNANCY [None]
  - LUNG INFECTION [None]
